FAERS Safety Report 18612215 (Version 3)
Quarter: 2021Q1

REPORT INFORMATION
  Report Type: Report from Study
  Country: US (occurrence: US)
  Receive Date: 20201214
  Receipt Date: 20210210
  Transmission Date: 20210419
  Serious: Yes (Other)
  Sender: FDA-Public Use
  Company Number: US-BAYER-2020-232687

PATIENT
  Age: 66 Year
  Sex: Female

DRUGS (2)
  1. STIVARGA [Suspect]
     Active Substance: REGORAFENIB
     Indication: COLORECTAL CANCER
     Dosage: DAILY DOSE 120 MG 21 DAYS ON/7 DAYS OFF/LOW FAT BREAKFAST
     Route: 048
     Dates: start: 20201022
  2. STIVARGA [Suspect]
     Active Substance: REGORAFENIB
     Indication: COLORECTAL CANCER
     Dosage: DAILY DOSE 80 MG 14 DAYS ON/ 14 DAYS OFF CONTINUES UNINTERRUPTED
     Route: 048
     Dates: end: 20201215

REACTIONS (15)
  - Constipation [Recovered/Resolved]
  - Pain in extremity [Not Recovered/Not Resolved]
  - Blister [Not Recovered/Not Resolved]
  - Peripheral swelling [Recovered/Resolved]
  - Gait disturbance [Not Recovered/Not Resolved]
  - Asthenia [Not Recovered/Not Resolved]
  - Pain [Recovered/Resolved]
  - Pain in extremity [Recovered/Resolved]
  - Peripheral swelling [Not Recovered/Not Resolved]
  - Blister [Not Recovered/Not Resolved]
  - Off label use [None]
  - Fatigue [Recovered/Resolved]
  - Blister [Recovered/Resolved]
  - Gait disturbance [Recovered/Resolved]
  - Inappropriate schedule of product administration [None]

NARRATIVE: CASE EVENT DATE: 2020
